FAERS Safety Report 10754701 (Version 2)
Quarter: 2015Q2

REPORT INFORMATION
  Report Type: Spontaneous
  Country: US (occurrence: US)
  Receive Date: 20150202
  Receipt Date: 20150403
  Transmission Date: 20150821
  Serious: No
  Sender: FDA-Public Use
  Company Number: US-PFIZER INC-2015037295

PATIENT
  Age: 41 Year
  Sex: Male

DRUGS (3)
  1. EFFEXOR XR [Suspect]
     Active Substance: VENLAFAXINE HYDROCHLORIDE
     Indication: DEPRESSION
  2. EFFEXOR XR [Suspect]
     Active Substance: VENLAFAXINE HYDROCHLORIDE
     Indication: ANXIETY
     Dosage: 75 MG, 2X/DAY
  3. EFFEXOR XR [Suspect]
     Active Substance: VENLAFAXINE HYDROCHLORIDE
     Indication: NERVOUSNESS

REACTIONS (1)
  - Thinking abnormal [Recovered/Resolved]
